FAERS Safety Report 13713810 (Version 2)
Quarter: 2017Q3

REPORT INFORMATION
  Report Type: Spontaneous
  Country: US (occurrence: US)
  Receive Date: 20170704
  Receipt Date: 20170711
  Transmission Date: 20171127
  Serious: Yes (Other)
  Sender: FDA-Public Use
  Company Number: US-CONCORDIA PHARMACEUTICALS INC.-GSH201706-003856

PATIENT
  Age: 39 Year
  Sex: Female

DRUGS (1)
  1. HYDROXYCHLOROQUINE [Suspect]
     Active Substance: HYDROXYCHLOROQUINE
     Indication: SYSTEMIC LUPUS ERYTHEMATOSUS
     Route: 065

REACTIONS (13)
  - Angiogram abnormal [Unknown]
  - Retinal degeneration [Unknown]
  - Visual acuity reduced [Unknown]
  - Maculopathy [Unknown]
  - Visual field defect [Unknown]
  - Retinogram abnormal [Unknown]
  - Retinopathy [Unknown]
  - Toxicity to various agents [Unknown]
  - Night blindness [Unknown]
  - Optical coherence tomography abnormal [Unknown]
  - Macular cyst [Unknown]
  - Fundoscopy abnormal [Unknown]
  - Cystoid macular oedema [Unknown]
